FAERS Safety Report 10183064 (Version 4)
Quarter: 2014Q2

REPORT INFORMATION
  Report Type: Spontaneous
  Country: US (occurrence: US)
  Receive Date: 20140520
  Receipt Date: 20140609
  Transmission Date: 20141212
  Serious: Yes (Other)
  Sender: FDA-Public Use
  Company Number: US-TEVA-482744USA

PATIENT
  Sex: Female

DRUGS (1)
  1. PROAIR HFA [Suspect]
     Indication: ASTHMA
     Dosage: 2 PUFFS 4 TIMES DAILY
     Route: 055

REACTIONS (17)
  - Drug hypersensitivity [Unknown]
  - Drug hypersensitivity [Unknown]
  - Throat tightness [Unknown]
  - Device malfunction [Unknown]
  - Nausea [Unknown]
  - Dyspnoea [Unknown]
  - Flushing [Unknown]
  - Cough [Unknown]
  - Drug ineffective [Unknown]
  - No therapeutic response [Unknown]
  - Erythema [Unknown]
  - Pruritus [Unknown]
  - Dysphonia [Unknown]
  - Product taste abnormal [Unknown]
  - Burning sensation [Unknown]
  - Dysphonia [Unknown]
  - Device malfunction [Unknown]
